FAERS Safety Report 6938322-2 (Version None)
Quarter: 2010Q3

REPORT INFORMATION
  Report Type: 
  Country: None (occurrence: None)
  Receive Date: 20100824
  Receipt Date: 20100812
  Transmission Date: 20110219
  Serious: Yes (Life-Threatening, Other)
  Sender: FDA-Public Use
  Company Number: AU-PFIZER INC-2010090605

PATIENT
  Sex: Female

DRUGS (7)
  1. XALATAN [Suspect]
     Indication: GLAUCOMA
     Dosage: UNK
     Route: 047
  2. XALATAN [Suspect]
     Indication: INTRAOCULAR PRESSURE INCREASED
  3. PREDNISONE [Concomitant]
     Indication: ASTHMA
     Dosage: UNK
  4. PULMICORT [Concomitant]
     Indication: ASTHMA
     Dosage: UNK
  5. VENTOLIN [Concomitant]
     Indication: ASTHMA
     Dosage: UNK
  6. SOMAC [Concomitant]
     Dosage: 40 MG, UNK
  7. ATACAND [Concomitant]
     Dosage: 8 MG, UNK

REACTIONS (1)
  - BRONCHOSPASM [None]
